FAERS Safety Report 7285051-4 (Version None)
Quarter: 2011Q1

REPORT INFORMATION
  Report Type: 
  Country: None (occurrence: None)
  Receive Date: 20110210
  Receipt Date: 20110126
  Transmission Date: 20110831
  Serious: Yes (Hospitalization)
  Sender: FDA-Public Use
  Company Number: CA-RANBAXY-2011RR-41601

PATIENT
  Age: 72 Year
  Sex: Male

DRUGS (8)
  1. DOXYCYCLINE [Suspect]
     Dosage: 100 MG, BID
     Route: 048
  2. ACETYLSALICYLIC ACID [Concomitant]
     Dosage: 325 MG, TID
     Route: 048
  3. LOVASTATIN [Suspect]
     Dosage: 20 MG, BID
     Route: 048
  4. PREDNISOLONE [Concomitant]
     Dosage: 10 MG, QOD
     Route: 048
  5. PREDNISOLONE [Concomitant]
     Dosage: 15 MG, UNK
     Route: 048
  6. DANAZOL [Suspect]
     Dosage: 200 MG, TID
     Route: 048
  7. ATENOLOL [Concomitant]
     Dosage: 50 MG, UNK
     Route: 048
  8. DIPYRIDAMOLE [Concomitant]
     Dosage: 75 MG, TID
     Route: 048

REACTIONS (1)
  - RHABDOMYOLYSIS [None]
